FAERS Safety Report 4515148-0 (Version None)
Quarter: 2004Q4

REPORT INFORMATION
  Report Type: 
  Country: None (occurrence: None)
  Receive Date: 20041130
  Receipt Date: 20041130
  Transmission Date: 20050328
  Serious: Yes (Other)
  Sender: FDA-Public Use
  Company Number: None

PATIENT
  Sex: Female
  Weight: 72.5755 kg

DRUGS (8)
  1. CELEBREX [Suspect]
     Indication: ARTHRITIS
     Dosage: 1 CAPSULE  PER DAY   ORAL
     Route: 048
     Dates: start: 20041119, end: 20041120
  2. TRAZODONE HCL [Concomitant]
  3. CYCLOBENZAPRINE [Concomitant]
  4. OTC ANTIHISTAMINE [Concomitant]
  5. OTC NSAID [Concomitant]
  6. ACETAMINOPHEN [Concomitant]
  7. MULTI-VITAMIN [Concomitant]
  8. CALCIUM SUPPLEMENT [Concomitant]

REACTIONS (1)
  - RASH ERYTHEMATOUS [None]
